FAERS Safety Report 5286811-1 (Version None)
Quarter: 2007Q2

REPORT INFORMATION
  Report Type: 
  Country: None (occurrence: None)
  Receive Date: 20070404
  Receipt Date: 20070321
  Transmission Date: 20071010
  Serious: Yes (Hospitalization)
  Sender: FDA-Public Use
  Company Number: US-SHR-US-2007-000557

PATIENT
  Age: 49 Year
  Sex: Female
  Weight: 63.5 kg

DRUGS (13)
  1. BETASERON [Suspect]
     Indication: RELAPSING-REMITTING MULTIPLE SCLEROSIS
     Dosage: 8 MIU, EVERY 2D
     Route: 058
     Dates: start: 20050105
  2. VICODIN [Concomitant]
  3. CORTICOSTEROIDS [Concomitant]
  4. PREDNISONE [Concomitant]
     Dosage: 10 MG/D, UNK
  5. LEXAPRO [Concomitant]
     Dosage: 10 UNK, UNK
  6. BACLOFEN [Concomitant]
     Dosage: 10 MG, TWO 4X/DAY
  7. FOSAMAX [Concomitant]
     Dosage: 70 MG, 1X/WEEK
  8. HYDROCODONE [Concomitant]
     Dosage: 1 TAB(S) 4-6 HOURS, AS REQ'D
  9. TRAMADOL 50 [Concomitant]
     Dosage: 50 UNK, EVERY 8H
  10. POTASSIUM CHLORIDE [Concomitant]
     Dosage: 1 UNK, 1X/DAY
  11. ATENOLOL [Concomitant]
     Dosage: 50 UNK, UNK
  12. CITRUCEL [Concomitant]
     Dosage: 1 UNK, 1X/DAY
  13. ASPIRIN [Concomitant]
     Dosage: UNK, 1X/DAY

REACTIONS (10)
  - ANAEMIA VITAMIN B12 DEFICIENCY [None]
  - BLOOD GLUCOSE INCREASED [None]
  - CONVULSION [None]
  - DEPRESSION [None]
  - FALL [None]
  - FEMUR FRACTURE [None]
  - HIP FRACTURE [None]
  - OSTEOARTHRITIS [None]
  - OSTEOPOROSIS [None]
  - PAIN [None]
